FAERS Safety Report 7389315-5 (Version None)
Quarter: 2011Q2

REPORT INFORMATION
  Report Type: 
  Country: None (occurrence: None)
  Receive Date: 20110401
  Receipt Date: 20110322
  Transmission Date: 20111010
  Serious: Yes (Death, Hospitalization)
  Sender: FDA-Public Use
  Company Number: A0894290A

PATIENT
  Age: 68 Year
  Sex: Female

DRUGS (1)
  1. AVANDIA [Suspect]
     Indication: DIABETES MELLITUS
     Route: 048
     Dates: start: 19990101, end: 20090101

REACTIONS (4)
  - ARTERIOSCLEROSIS CORONARY ARTERY [None]
  - AMNESIA [None]
  - MYOCARDIAL INFARCTION [None]
  - DEMENTIA [None]
